APPROVED DRUG PRODUCT: NITROGLYCERIN
Active Ingredient: NITROGLYCERIN
Strength: 2%
Dosage Form/Route: OINTMENT;TRANSDERMAL
Application: A218235 | Product #001 | TE Code: AB
Applicant: ENCUBE ETHICALS PRIVATE LTD
Approved: Apr 15, 2025 | RLD: No | RS: No | Type: RX